FAERS Safety Report 6318491-8 (Version None)
Quarter: 2009Q3

REPORT INFORMATION
  Report Type: 
  Country: None (occurrence: None)
  Receive Date: 20090821
  Receipt Date: 20090811
  Transmission Date: 20100115
  Serious: Yes (Hospitalization)
  Sender: FDA-Public Use
  Company Number: LK-JNJFOC-20090806364

PATIENT

DRUGS (2)
  1. ACETAMINOPHEN [Suspect]
  2. ACETAMINOPHEN [Suspect]
     Indication: VIRAL INFECTION
     Dosage: 998 MG/KG/DAY OVER A PERIOD OF 4 DAYS

REACTIONS (3)
  - ACUTE HEPATIC FAILURE [None]
  - INCORRECT DRUG DOSAGE FORM ADMINISTERED [None]
  - OVERDOSE [None]
